FAERS Safety Report 23042049 (Version 3)
Quarter: 2024Q1

REPORT INFORMATION
  Report Type: Spontaneous
  Country: US (occurrence: US)
  Receive Date: 20231008
  Receipt Date: 20240103
  Transmission Date: 20240410
  Serious: No
  Sender: FDA-Public Use
  Company Number: US-SA-SAC20231003001627

PATIENT
  Age: 23 Year
  Sex: Female

DRUGS (1)
  1. DUPIXENT [Suspect]
     Active Substance: DUPILUMAB
     Indication: Dermatitis atopic
     Dosage: 300 MG, QOW
     Route: 058
     Dates: start: 2023

REACTIONS (12)
  - Mood swings [Unknown]
  - Condition aggravated [Unknown]
  - Acne [Unknown]
  - Dry skin [Unknown]
  - Dyshidrotic eczema [Unknown]
  - Somnolence [Unknown]
  - Skin exfoliation [Unknown]
  - Injection site irritation [Unknown]
  - Pruritus [Unknown]
  - Injection site pain [Unknown]
  - Product preparation error [Unknown]
  - Condition aggravated [Unknown]

NARRATIVE: CASE EVENT DATE: 20230101
